FAERS Safety Report 19764164 (Version 1)
Quarter: 2021Q3

REPORT INFORMATION
  Report Type: Spontaneous
  Country: US (occurrence: US)
  Receive Date: 20210830
  Receipt Date: 20210830
  Transmission Date: 20211014
  Serious: No
  Sender: FDA-Public Use
  Company Number: US-PFIZER INC-2021611946

PATIENT
  Age: 46 Year
  Sex: Female

DRUGS (7)
  1. BOSULIF [Suspect]
     Active Substance: BOSUTINIB MONOHYDRATE
     Dosage: 300 MG, 1X/DAY
     Route: 048
     Dates: start: 20170201
  2. CYANOCOBALAMIN. [Concomitant]
     Active Substance: CYANOCOBALAMIN
  3. OXYCODONE [Concomitant]
     Active Substance: OXYCODONE
  4. ONDANSETRON [Concomitant]
     Active Substance: ONDANSETRON
  5. LIDOCAINE. [Concomitant]
     Active Substance: LIDOCAINE
  6. NAPROXEN. [Concomitant]
     Active Substance: NAPROXEN
  7. ALBUTEROL SULFATE. [Concomitant]
     Active Substance: ALBUTEROL SULFATE

REACTIONS (4)
  - Frustration tolerance decreased [Unknown]
  - Depression [Unknown]
  - Vomiting [Unknown]
  - Nausea [Unknown]
